FAERS Safety Report 9047222 (Version 1)
Quarter: 2013Q1

REPORT INFORMATION
  Report Type: Report from Study
  Country: US (occurrence: US)
  Receive Date: 20130130
  Receipt Date: 20130130
  Transmission Date: 20140127
  Serious: No
  Sender: FDA-Public Use
  Company Number: US-ABBOTT-12P-163-0974895-00

PATIENT
  Age: 61 None
  Sex: Female

DRUGS (15)
  1. HUMIRA [Suspect]
     Indication: PSORIASIS
     Dates: start: 20120329
  2. HUMIRA [Suspect]
  3. ZOLOFT [Concomitant]
     Indication: DISCOMFORT
     Dosage: 100MG DAILY
  4. ZOLOFT [Concomitant]
     Indication: DEPRESSION
  5. ALLEGRA [Concomitant]
     Indication: HYPERSENSITIVITY
     Dosage: 180MG DAILY
  6. SINGULAIR [Concomitant]
     Indication: HYPERSENSITIVITY
     Dosage: 10MG AT BEDTIME
  7. DEMODEX [Concomitant]
     Indication: POLYURIA
     Dosage: 20MG DAILY
  8. POTASSIUM [Concomitant]
     Indication: PRODUCT USED FOR UNKNOWN INDICATION
     Dosage: 40MEQ DAILY
  9. LOSARTAN [Concomitant]
     Indication: HYPERTENSION
     Dosage: 50MG DAILY
  10. COMBIVENT [Concomitant]
     Indication: ASTHMA
     Dosage: INHALER
     Route: 055
  11. ADVAIR [Concomitant]
     Indication: ASTHMA
     Dosage: 250MG/50MG 1 PUFF DAILY
  12. B12 [Concomitant]
     Indication: VITAMIN B12 DECREASED
     Dosage: WEEKLY
  13. BIOTIN [Concomitant]
     Indication: PRODUCT USED FOR UNKNOWN INDICATION
  14. FOLIC ACID [Concomitant]
     Indication: PRODUCT USED FOR UNKNOWN INDICATION
  15. MULTIVITAMIN [Concomitant]
     Indication: PRODUCT USED FOR UNKNOWN INDICATION

REACTIONS (2)
  - Wrong technique in drug usage process [Unknown]
  - Injection site pain [Recovering/Resolving]
